FAERS Safety Report 6906941-5 (Version None)
Quarter: 2010Q3

REPORT INFORMATION
  Report Type: 
  Country: None (occurrence: None)
  Receive Date: 20100804
  Receipt Date: 20100630
  Transmission Date: 20110219
  Serious: Yes (Death, Other)
  Sender: FDA-Public Use
  Company Number: PHHY2010TN43435

PATIENT
  Sex: Male
  Weight: 65.2 kg

DRUGS (1)
  1. ICL670A ICL+ [Suspect]
     Indication: APLASTIC ANAEMIA
     Dosage: UNK
     Route: 048
     Dates: start: 20100623

REACTIONS (2)
  - DEATH [None]
  - RESPIRATORY DISTRESS [None]
